FAERS Safety Report 9709069 (Version 1)
Quarter: 2013Q4

REPORT INFORMATION
  Report Type: Spontaneous
  Country: GB (occurrence: GB)
  Receive Date: 20131125
  Receipt Date: 20131125
  Transmission Date: 20140711
  Serious: Yes (Hospitalization)
  Sender: FDA-Public Use
  Company Number: PHHY2013GB132916

PATIENT
  Age: 63 Year
  Sex: Female
  Weight: 74 kg

DRUGS (4)
  1. RAMIPRIL [Suspect]
     Indication: HYPERTENSION
     Dosage: 5 MG, UNK
     Route: 048
     Dates: end: 20131103
  2. AMLODIPINE [Concomitant]
     Indication: HYPERTENSION
     Dosage: 5 MG, UNK
     Route: 048
     Dates: start: 201306
  3. VENTOLIN [Concomitant]
     Indication: ASTHMA
     Dosage: 100 UG, UNK
     Route: 055
     Dates: start: 201310
  4. CLENIL MODULITE [Concomitant]
     Indication: ASTHMA
     Dosage: 200 UG, UNK
     Route: 055
     Dates: start: 201309

REACTIONS (4)
  - Drug reaction with eosinophilia and systemic symptoms [Recovering/Resolving]
  - Blister [Recovering/Resolving]
  - Rash [Recovering/Resolving]
  - Eosinophilia [Recovering/Resolving]
